FAERS Safety Report 14588159 (Version 1)
Quarter: 2018Q1

REPORT INFORMATION
  Report Type: Spontaneous
  Country: US (occurrence: US)
  Receive Date: 20180301
  Receipt Date: 20180301
  Transmission Date: 20180509
  Serious: No
  Sender: FDA-Public Use
  Company Number: US-PERRIGO-17US026473

PATIENT
  Age: 32 Year
  Sex: Male
  Weight: 86.17 kg

DRUGS (2)
  1. TESTOSTERONE CYPIONATE. [Suspect]
     Active Substance: TESTOSTERONE CYPIONATE
     Indication: BLOOD TESTOSTERONE DECREASED
     Dosage: 300 MG, WEEKLY
     Route: 030
     Dates: start: 201702, end: 20170819
  2. TESTOSTERONE CYPIONATE. [Suspect]
     Active Substance: TESTOSTERONE CYPIONATE
     Dosage: 300 MG, WEEKLY
     Route: 030
     Dates: start: 20170820

REACTIONS (6)
  - Pyrexia [Recovered/Resolved]
  - Injection site swelling [Unknown]
  - Injection site reaction [Recovered/Resolved]
  - Chills [Recovered/Resolved]
  - Injection site pain [Unknown]
  - Inappropriate schedule of drug administration [Not Recovered/Not Resolved]

NARRATIVE: CASE EVENT DATE: 201702
